FAERS Safety Report 11697739 (Version 2)
Quarter: 2015Q4

REPORT INFORMATION
  Report Type: Spontaneous
  Country: US (occurrence: US)
  Receive Date: 20151104
  Receipt Date: 20151231
  Transmission Date: 20160304
  Serious: No
  Sender: FDA-Public Use
  Company Number: US-PFIZER INC-2015367751

PATIENT
  Age: 44 Year
  Sex: Female
  Weight: 52 kg

DRUGS (7)
  1. MULTIVITAMIN [Concomitant]
     Active Substance: VITAMINS
     Dosage: 1 DF, ALTERNATE DAY
  2. MULTIVITAMIN [Concomitant]
     Active Substance: VITAMINS
     Dosage: 1 DF, ALTERNATE DAY
  3. PRISTIQ EXTENDED RELEASE [Suspect]
     Active Substance: DESVENLAFAXINE SUCCINATE
     Indication: DEPRESSION
     Dosage: 100 MG, 1X/DAY, IN THE MORNING
     Route: 048
     Dates: start: 2012
  4. NEURONTIN [Concomitant]
     Active Substance: GABAPENTIN
     Indication: PAIN
     Dosage: 800 MG, 3-5 TIMES DAILY
  5. NEURONTIN [Concomitant]
     Active Substance: GABAPENTIN
     Indication: INTERVERTEBRAL DISC PROTRUSION
     Dosage: 200 MG, UNK
     Dates: start: 2004
  6. NORCO [Concomitant]
     Active Substance: ACETAMINOPHEN\HYDROCODONE BITARTRATE
     Indication: ASTHENIA
     Dosage: 10 MG, 1X/DAY
     Dates: start: 2012
  7. IBUPROFEN. [Concomitant]
     Active Substance: IBUPROFEN
     Indication: SWELLING
     Dosage: 800 MG, 3-5 TIMES DAILY
     Dates: start: 2004

REACTIONS (5)
  - Vertigo [Unknown]
  - Personality disorder [Unknown]
  - Coordination abnormal [Unknown]
  - Dizziness [Not Recovered/Not Resolved]
  - Elevated mood [Unknown]

NARRATIVE: CASE EVENT DATE: 20151027
